FAERS Safety Report 11165929 (Version 4)
Quarter: 2015Q4

REPORT INFORMATION
  Report Type: Report from Study
  Country: US (occurrence: US)
  Receive Date: 20150604
  Receipt Date: 20151105
  Transmission Date: 20160304
  Serious: Yes (Hospitalization)
  Sender: FDA-Public Use
  Company Number: US-ACTELION-A-US2015-118840

PATIENT
  Age: 71 Year
  Sex: Female

DRUGS (11)
  1. CHOLECALCIFEROL [Concomitant]
     Active Substance: CHOLECALCIFEROL
  2. TIZANIDINE. [Concomitant]
     Active Substance: TIZANIDINE
  3. BUMETANIDE. [Concomitant]
     Active Substance: BUMETANIDE
  4. PROTONIX [Concomitant]
     Active Substance: PANTOPRAZOLE SODIUM
  5. ALDACTONE [Concomitant]
     Active Substance: SPIRONOLACTONE
  6. PREDNISONE. [Concomitant]
     Active Substance: PREDNISONE
  7. MACITENTAN [Suspect]
     Active Substance: MACITENTAN
     Indication: PULMONARY ARTERIAL HYPERTENSION
     Dosage: 10 MG, QD
     Route: 048
     Dates: start: 20150505
  8. AROMASIN [Concomitant]
     Active Substance: EXEMESTANE
  9. DIGOX [Concomitant]
     Active Substance: DIGOXIN
     Indication: BRADYCARDIA
     Dosage: UNK
     Dates: end: 20150512
  10. PAXIL [Concomitant]
     Active Substance: PAROXETINE HYDROCHLORIDE
  11. GABAPENTIN. [Concomitant]
     Active Substance: GABAPENTIN

REACTIONS (18)
  - Hypotension [Unknown]
  - Syncope [Unknown]
  - Sinus disorder [Unknown]
  - Fatigue [Unknown]
  - Dizziness [Unknown]
  - Oedema peripheral [Unknown]
  - Myalgia [Unknown]
  - Blood pressure fluctuation [Unknown]
  - Visual impairment [Unknown]
  - Dehydration [Unknown]
  - Acute kidney injury [Recovered/Resolved]
  - Arrhythmia [Unknown]
  - Dry mouth [Unknown]
  - Dyspnoea exertional [Unknown]
  - Dyspnoea [Unknown]
  - Nasal disorder [Unknown]
  - Chest discomfort [Unknown]
  - Back pain [Unknown]

NARRATIVE: CASE EVENT DATE: 20150509
